FAERS Safety Report 9129245 (Version 2)
Quarter: 2013Q1

REPORT INFORMATION
  Report Type: Report from Study
  Country: US (occurrence: US)
  Receive Date: 20130228
  Receipt Date: 20130328
  Transmission Date: 20140127
  Serious: Yes (Hospitalization)
  Sender: FDA-Public Use
  Company Number: 2013SP000497

PATIENT
  Age: 41 Year
  Sex: Male
  Weight: 77 kg

DRUGS (3)
  1. SM-13496 [Suspect]
     Indication: SCHIZOPHRENIA
     Route: 048
     Dates: start: 20130202, end: 20130214
  2. SM-13496 [Suspect]
     Indication: SCHIZOPHRENIA
     Route: 048
     Dates: start: 20130130, end: 20130201
  3. LORAZEPAM [Concomitant]
     Indication: INSOMNIA
     Route: 048
     Dates: start: 20130128

REACTIONS (1)
  - Therapeutic response delayed [Recovered/Resolved]
